FAERS Safety Report 12656390 (Version 2)
Quarter: 2016Q3

REPORT INFORMATION
  Report Type: Report from Study
  Country: DE (occurrence: DE)
  Receive Date: 20160816
  Receipt Date: 20160902
  Transmission Date: 20161109
  Serious: Yes (Other)
  Sender: FDA-Public Use
  Company Number: DE-ABBVIE-16K-062-1697826-00

PATIENT
  Age: 48 Year
  Sex: Female
  Weight: 59 kg

DRUGS (1)
  1. HUMIRA [Suspect]
     Active Substance: ADALIMUMAB
     Indication: RHEUMATOID ARTHRITIS
     Route: 058
     Dates: start: 20110428

REACTIONS (3)
  - Hepatic steatosis [Not Recovered/Not Resolved]
  - Haematuria [Not Recovered/Not Resolved]
  - Renal infarct [Recovered/Resolved]

NARRATIVE: CASE EVENT DATE: 20151208
